FAERS Safety Report 10975999 (Version 1)
Quarter: 2015Q2

REPORT INFORMATION
  Report Type: Spontaneous
  Country: JP (occurrence: JP)
  Receive Date: 20150401
  Receipt Date: 20150401
  Transmission Date: 20150821
  Serious: Yes (Hospitalization, Other)
  Sender: FDA-Public Use
  Company Number: JP-MYLANLABS-2015M1009207

PATIENT

DRUGS (2)
  1. PREDNISOLONE TABLETS 1^HOEI^ [Suspect]
     Active Substance: PREDNISOLONE
     Indication: SYSTEMIC LUPUS ERYTHEMATOSUS
     Dosage: 13 MG, QD
     Route: 048
  2. TACROLIMUS CAPSULES 0.5MG [PFIZER] [Suspect]
     Active Substance: TACROLIMUS
     Indication: SYSTEMIC LUPUS ERYTHEMATOSUS
     Dosage: 2.5 MG, QD
     Route: 048

REACTIONS (4)
  - Rectal stenosis [Recovering/Resolving]
  - Vasculitis [Unknown]
  - Rectal perforation [Recovering/Resolving]
  - Rectal ulcer [Recovering/Resolving]
